FAERS Safety Report 4939729-5 (Version None)
Quarter: 2006Q1

REPORT INFORMATION
  Report Type: 
  Country: None (occurrence: None)
  Receive Date: 20060310
  Receipt Date: 20060302
  Transmission Date: 20060701
  Serious: Yes (Other)
  Sender: FDA-Public Use
  Company Number: GB-JNJFOC-20060300877

PATIENT
  Age: 55 Year
  Sex: Male

DRUGS (9)
  1. ITRACONAZOLE [Suspect]
  2. ITRACONAZOLE [Suspect]
  3. FLUTICASONE PROPIONATE [Interacting]
     Indication: FUNGAL INFECTION
     Dosage: 1-1.5 MG BID
     Route: 055
  4. FORMOTEROL [Concomitant]
  5. TERBUTALINE [Concomitant]
  6. MONTELUKAST [Concomitant]
  7. ALENDRONATE SODIUM [Concomitant]
  8. AMITRIPTYLINE HCL [Concomitant]
  9. CODEINE PHOSPHATE [Concomitant]

REACTIONS (2)
  - CUSHING'S SYNDROME [None]
  - DRUG INTERACTION [None]
